FAERS Safety Report 4865133-4 (Version None)
Quarter: 2005Q4

REPORT INFORMATION
  Report Type: 
  Country: None (occurrence: None)
  Receive Date: 20051219
  Receipt Date: 20051209
  Transmission Date: 20060501
  Serious: Yes (Hospitalization, Other)
  Sender: FDA-Public Use
  Company Number: 2005-10-1490

PATIENT
  Age: 62 Year
  Sex: Male
  Weight: 73 kg

DRUGS (16)
  1. TEMODAL (TEMOZOLOMIDE) CAPSULES (LIKE TEMDOR) [Suspect]
     Indication: LUNG CANCER METASTATIC
     Dosage: 75 MG/M^2 ORAL
     Route: 048
     Dates: start: 20050701, end: 20050716
  2. TEMODAL (TEMOZOLOMIDE) CAPSULES (LIKE TEMDOR) [Suspect]
     Indication: METASTASES TO CENTRAL NERVOUS SYSTEM
     Dosage: 75 MG/M^2 ORAL
     Route: 048
     Dates: start: 20050701, end: 20050716
  3. CISPLATIN [Suspect]
     Indication: LUNG CANCER METASTATIC
     Dosage: SEE IMAGE
     Dates: start: 20050712, end: 20050712
  4. CISPLATIN [Suspect]
     Indication: METASTASES TO CENTRAL NERVOUS SYSTEM
     Dosage: SEE IMAGE
     Dates: start: 20050712, end: 20050712
  5. CISPLATIN [Suspect]
     Indication: LUNG CANCER METASTATIC
     Dosage: SEE IMAGE
     Dates: start: 20050801, end: 20050801
  6. CISPLATIN [Suspect]
     Indication: METASTASES TO CENTRAL NERVOUS SYSTEM
     Dosage: SEE IMAGE
     Dates: start: 20050801, end: 20050801
  7. CISPLATIN [Suspect]
     Indication: LUNG CANCER METASTATIC
     Dosage: SEE IMAGE
     Dates: start: 20050712, end: 20050913
  8. CISPLATIN [Suspect]
     Indication: METASTASES TO CENTRAL NERVOUS SYSTEM
     Dosage: SEE IMAGE
     Dates: start: 20050712, end: 20050913
  9. CISPLATIN [Suspect]
     Indication: LUNG CANCER METASTATIC
     Dosage: SEE IMAGE
     Dates: start: 20050913, end: 20050913
  10. CISPLATIN [Suspect]
     Indication: METASTASES TO CENTRAL NERVOUS SYSTEM
     Dosage: SEE IMAGE
     Dates: start: 20050913, end: 20050913
  11. GEMZAR [Suspect]
     Indication: LUNG NEOPLASM MALIGNANT
     Dosage: SEE IMAGE
     Dates: start: 20050801, end: 20050801
  12. GEMZAR [Suspect]
     Indication: LUNG NEOPLASM MALIGNANT
     Dosage: SEE IMAGE
     Dates: start: 20050801, end: 20050913
  13. GEMZAR [Suspect]
     Indication: LUNG NEOPLASM MALIGNANT
     Dosage: SEE IMAGE
     Dates: start: 20050913, end: 20050913
  14. MEDROL [Suspect]
     Dosage: SEE IMAGE
  15. RADIATION THERAPY [Concomitant]
  16. TAXOL [Concomitant]

REACTIONS (9)
  - AMYOTROPHY [None]
  - DUODENAL ULCER [None]
  - HIATUS HERNIA [None]
  - MUSCULOSKELETAL CHEST PAIN [None]
  - OEDEMA PERIPHERAL [None]
  - OESOPHAGEAL CANDIDIASIS [None]
  - OESOPHAGITIS [None]
  - PAIN [None]
  - THROMBOCYTOPENIA [None]
